FAERS Safety Report 16404088 (Version 3)
Quarter: 2019Q2

REPORT INFORMATION
  Report Type: Spontaneous
  Country: US (occurrence: US)
  Receive Date: 20190607
  Receipt Date: 20190625
  Transmission Date: 20190711
  Serious: Yes (Hospitalization, Other)
  Sender: FDA-Public Use
  Company Number: US-ASTRAZENECA-2018SF34328

PATIENT
  Age: 562 Month
  Sex: Male
  Weight: 151 kg

DRUGS (10)
  1. ATENOLOL. [Concomitant]
     Active Substance: ATENOLOL
  2. CLONIDINE. [Concomitant]
     Active Substance: CLONIDINE
  3. ZOLOFT [Concomitant]
     Active Substance: SERTRALINE HYDROCHLORIDE
  4. ATENOLOL. [Concomitant]
     Active Substance: ATENOLOL
  5. PROTONIX [Suspect]
     Active Substance: PANTOPRAZOLE SODIUM
     Route: 065
     Dates: start: 200810, end: 201307
  6. TRAMADOL. [Concomitant]
     Active Substance: TRAMADOL
  7. PRILOSEC OTC [Suspect]
     Active Substance: OMEPRAZOLE MAGNESIUM
     Route: 048
     Dates: start: 200810, end: 201307
  8. NEXIUM [Suspect]
     Active Substance: ESOMEPRAZOLE MAGNESIUM
     Route: 048
     Dates: start: 200810, end: 201307
  9. PRILOSEC [Suspect]
     Active Substance: OMEPRAZOLE MAGNESIUM
     Route: 048
     Dates: start: 20111017, end: 20130703
  10. NEXIUM [Suspect]
     Active Substance: ESOMEPRAZOLE MAGNESIUM
     Route: 048
     Dates: start: 20081009, end: 20110524

REACTIONS (8)
  - Chronic kidney disease [Unknown]
  - Renal injury [Unknown]
  - Acute kidney injury [Unknown]
  - Tubulointerstitial nephritis [Unknown]
  - End stage renal disease [Unknown]
  - Nephrogenic anaemia [Unknown]
  - Chronic kidney disease-mineral and bone disorder [Unknown]
  - Renal failure [Unknown]

NARRATIVE: CASE EVENT DATE: 201308
